FAERS Safety Report 5623923-4 (Version None)
Quarter: 2008Q1

REPORT INFORMATION
  Report Type: 
  Country: None (occurrence: None)
  Receive Date: 20080207
  Receipt Date: 20080123
  Transmission Date: 20080703
  Serious: Yes (Hospitalization)
  Sender: FDA-Public Use
  Company Number: S07-GER-05786-01

PATIENT
  Age: 86 Year
  Sex: Male
  Weight: 72 kg

DRUGS (9)
  1. ESCITALOPRAM [Suspect]
     Indication: MAJOR DEPRESSION
     Dosage: 10 MG QD PO
     Route: 048
     Dates: start: 20070915, end: 20071015
  2. ESCITALOPRAM [Suspect]
     Indication: MAJOR DEPRESSION
     Dosage: 20 MG QD PO
     Route: 048
     Dates: start: 20071015, end: 20071022
  3. ACETYLSALICYLIC ACID SRT [Concomitant]
  4. CLOPIDOGREL [Concomitant]
  5. METOPROLOL TARTRATE [Concomitant]
  6. ALLOPURINOL [Concomitant]
  7. REPAGLINID                 (REPAGLINIDE) [Concomitant]
  8. L-DOPA (LEVODOPA) [Concomitant]
  9. PANTOPRAZOL (PANTOPRAZOLE) [Concomitant]

REACTIONS (2)
  - CARDIOVASCULAR DISORDER [None]
  - HYPONATRAEMIA [None]
